FAERS Safety Report 8135102-X (Version None)
Quarter: 2012Q1

REPORT INFORMATION
  Report Type: 
  Country: None (occurrence: None)
  Receive Date: 20120214
  Receipt Date: 20120207
  Transmission Date: 20120608
  Serious: Yes (Hospitalization)
  Sender: FDA-Public Use
  Company Number: US-BAYER-2011-027776

PATIENT
  Age: 26 Year
  Sex: Female

DRUGS (3)
  1. NORCO [Concomitant]
     Dosage: UNK
     Route: 048
     Dates: start: 20070401, end: 20070901
  2. METFORMIN HCL [Concomitant]
  3. YAZ [Suspect]
     Indication: CONTRACEPTION
     Dosage: UNK
     Route: 048
     Dates: start: 20070101

REACTIONS (9)
  - ANXIETY [None]
  - EMOTIONAL DISTRESS [None]
  - GENERAL PHYSICAL HEALTH DETERIORATION [None]
  - INJURY [None]
  - BILIARY DYSKINESIA [None]
  - CHOLECYSTECTOMY [None]
  - ANHEDONIA [None]
  - PAIN [None]
  - CHOLECYSTITIS CHRONIC [None]
